FAERS Safety Report 6414763-7 (Version None)
Quarter: 2009Q4

REPORT INFORMATION
  Report Type: 
  Country: None (occurrence: None)
  Receive Date: 20091026
  Receipt Date: 20091026
  Transmission Date: 20100525
  Serious: No
  Sender: FDA-Public Use
  Company Number: None

PATIENT
  Age: 73 Year
  Sex: Female
  Weight: 90.7194 kg

DRUGS (1)
  1. RECLAST [Suspect]
     Indication: OSTEOPOROSIS PROPHYLAXIS
     Dosage: 5MG/100ML 1 TIME IV DRIP
     Route: 041
     Dates: start: 20090408, end: 20090408

REACTIONS (8)
  - ACTIVITIES OF DAILY LIVING IMPAIRED [None]
  - ANGER [None]
  - ARTHRALGIA [None]
  - DEPRESSION [None]
  - DYSPNOEA [None]
  - FRUSTRATION [None]
  - MYALGIA [None]
  - POLYMYALGIA RHEUMATICA [None]
